FAERS Safety Report 8524199-0 (Version None)
Quarter: 2012Q3

REPORT INFORMATION
  Report Type: 
  Country: None (occurrence: None)
  Receive Date: 20120720
  Receipt Date: 20120711
  Transmission Date: 20120928
  Serious: Yes (Other)
  Sender: FDA-Public Use
  Company Number: US-ASTRAZENECA-2012SE48082

PATIENT
  Age: 59 Year
  Sex: Male
  Weight: 88.9 kg

DRUGS (10)
  1. SEROQUEL [Suspect]
     Route: 048
     Dates: start: 20030101
  2. SEROQUEL [Suspect]
     Indication: BIPOLAR DISORDER
     Route: 048
  3. TOPIRAMATE [Concomitant]
  4. LEVOTHYROXINE SODIUM [Concomitant]
  5. LISINOPRIL [Concomitant]
     Route: 048
  6. METFORMIN HYDROCHLORIDE [Concomitant]
  7. SIMVASTATIN [Concomitant]
  8. SEROQUEL [Suspect]
     Route: 048
  9. OMEPRAZOLE [Concomitant]
     Route: 048
  10. DEPAKOTE [Concomitant]

REACTIONS (17)
  - HUNGER [None]
  - TREMOR [None]
  - DEPRESSION [None]
  - DIABETES MELLITUS [None]
  - MALAISE [None]
  - BLOOD CHOLESTEROL INCREASED [None]
  - DRUG DOSE OMISSION [None]
  - WEIGHT INCREASED [None]
  - BIPOLAR DISORDER [None]
  - HYPERTENSION [None]
  - CATARACT [None]
  - MANIA [None]
  - HYPOTHYROIDISM [None]
  - NERVOUSNESS [None]
  - THYROID DISORDER [None]
  - WEIGHT DECREASED [None]
  - ANXIETY [None]
